FAERS Safety Report 16403090 (Version 1)
Quarter: 2019Q2

REPORT INFORMATION
  Report Type: Spontaneous
  Country: US (occurrence: US)
  Receive Date: 20190501
  Receipt Date: 20190501
  Transmission Date: 20190711
  Serious: Yes (Life-Threatening, Hospitalization)
  Sender: FDA-Public Use
  Company Number: None

PATIENT
  Age: 64 Year
  Sex: Male

DRUGS (1)
  1. DICLOXACILLIN [Suspect]
     Active Substance: DICLOXACILLIN
     Indication: INFECTION
     Route: 048
     Dates: start: 20190125, end: 20190204

REACTIONS (4)
  - Tubulointerstitial nephritis [None]
  - Drug hypersensitivity [None]
  - Metabolic acidosis [None]
  - Acute kidney injury [None]

NARRATIVE: CASE EVENT DATE: 20190202
